FAERS Safety Report 6528005-5 (Version None)
Quarter: 2010Q1

REPORT INFORMATION
  Report Type: 
  Country: None (occurrence: None)
  Receive Date: 20100105
  Receipt Date: 20100105
  Transmission Date: 20100710
  Serious: Yes (Disabling)
  Sender: FDA-Public Use
  Company Number: None

PATIENT
  Age: 5 Year
  Sex: Male
  Weight: 29.4838 kg

DRUGS (3)
  1. FOCALIN [Suspect]
     Indication: ADVERSE DRUG REACTION
     Dosage: 5 MG ONCE IN AM PO
     Route: 048
     Dates: start: 20090715, end: 20090715
  2. FOCALIN [Suspect]
     Indication: ATTENTION DEFICIT/HYPERACTIVITY DISORDER
     Dosage: 5 MG ONCE IN AM PO
     Route: 048
     Dates: start: 20090715, end: 20090715
  3. FOCALIN [Suspect]
     Indication: IMPULSE-CONTROL DISORDER
     Dosage: 5 MG ONCE IN AM PO
     Route: 048
     Dates: start: 20090715, end: 20090715

REACTIONS (10)
  - ABNORMAL BEHAVIOUR [None]
  - ACTIVITIES OF DAILY LIVING IMPAIRED [None]
  - AGGRESSION [None]
  - BALANCE DISORDER [None]
  - DYSKINESIA [None]
  - HALLUCINATIONS, MIXED [None]
  - HYPOPHAGIA [None]
  - INSOMNIA [None]
  - SENSORY DISTURBANCE [None]
  - TIC [None]
